FAERS Safety Report 5280538-8 (Version None)
Quarter: 2007Q1

REPORT INFORMATION
  Report Type: 
  Country: None (occurrence: None)
  Receive Date: 20061229
  Receipt Date: 20060821
  Transmission Date: 20070707
  Serious: Yes (Other)
  Sender: FDA-Public Use
  Company Number: 2006UW16543

PATIENT
  Age: 55 Year
  Sex: Male
  Weight: 81.646 kg

DRUGS (2)
  1. CRESTOR [Suspect]
     Indication: HYPERCHOLESTEROLAEMIA
     Dosage: 20 MG PO
     Route: 048
     Dates: start: 20060601
  2. ACTOS [Concomitant]

REACTIONS (2)
  - ALOPECIA [None]
  - BLOOD GLUCOSE INCREASED [None]
